FAERS Safety Report 24754888 (Version 1)
Quarter: 2024Q4

REPORT INFORMATION
  Report Type: Spontaneous
  Country: US (occurrence: US)
  Receive Date: 20241219
  Receipt Date: 20241219
  Transmission Date: 20250115
  Serious: Yes (Other)
  Sender: COOPERSURGICAL
  Company Number: US-COOPERSURGICAL, INC.-2024CPS003984

PATIENT
  Age: 41 Year
  Sex: Female
  Weight: 140.59 kg

DRUGS (1)
  1. PARAGARD T 380A [Suspect]
     Active Substance: COPPER
     Indication: Contraception
     Dosage: UNK
     Route: 015
     Dates: start: 20140101

REACTIONS (18)
  - Uterine cancer [Unknown]
  - Oophorectomy [Recovered/Resolved]
  - Laparotomy [Recovered/Resolved]
  - Reproductive complication associated with device [Not Recovered/Not Resolved]
  - Device breakage [Not Recovered/Not Resolved]
  - Foreign body in reproductive tract [Not Recovered/Not Resolved]
  - Complication of device removal [Not Recovered/Not Resolved]
  - Hypertension [Unknown]
  - Emotional disorder [Unknown]
  - Fear [Not Recovered/Not Resolved]
  - Performance status decreased [Not Recovered/Not Resolved]
  - Road traffic accident [Unknown]
  - Arthralgia [Unknown]
  - Procedural pain [Not Recovered/Not Resolved]
  - Back pain [Unknown]
  - Pain [Unknown]
  - Muscle spasms [Unknown]
  - Device dislocation [Not Recovered/Not Resolved]

NARRATIVE: CASE EVENT DATE: 20200101
